FAERS Safety Report 15627609 (Version 1)
Quarter: 2018Q4

REPORT INFORMATION
  Report Type: Spontaneous
  Country: US (occurrence: US)
  Receive Date: 20181116
  Receipt Date: 20181116
  Transmission Date: 20190205
  Serious: Yes (Other)
  Sender: FDA-Public Use
  Company Number: US-MALLINCKRODT-T201805014

PATIENT
  Age: 1 Day
  Sex: Male
  Weight: 1 kg

DRUGS (4)
  1. METHADONE [Suspect]
     Active Substance: METHADONE HYDROCHLORIDE
     Indication: PRODUCT USED FOR UNKNOWN INDICATION
     Dosage: UNKNOWN
     Route: 064
  2. OXYCODONE [Suspect]
     Active Substance: OXYCODONE
     Indication: PRODUCT USED FOR UNKNOWN INDICATION
     Dosage: UNKNOWN
     Route: 064
  3. PHENCYCLIDINE [Suspect]
     Active Substance: PHENCYCLIDINE
     Indication: PRODUCT USED FOR UNKNOWN INDICATION
     Dosage: UNKNOWN
     Route: 064
  4. ACETAMINOPHEN. [Suspect]
     Active Substance: ACETAMINOPHEN
     Indication: PRODUCT USED FOR UNKNOWN INDICATION
     Dosage: UNKNOWN
     Route: 064

REACTIONS (7)
  - Pulmonary oedema neonatal [Recovered/Resolved]
  - Drug withdrawal syndrome neonatal [Unknown]
  - Premature baby [Unknown]
  - Foetal exposure during pregnancy [Unknown]
  - Foetal acidosis [Unknown]
  - Apgar score abnormal [Unknown]
  - Toxicity to various agents [Unknown]
